FAERS Safety Report 7405523-9 (Version None)
Quarter: 2011Q2

REPORT INFORMATION
  Report Type: 
  Country: None (occurrence: None)
  Receive Date: 20110411
  Receipt Date: 20110322
  Transmission Date: 20111010
  Serious: No
  Sender: FDA-Public Use
  Company Number: B0707616A

PATIENT

DRUGS (1)
  1. RELENZA [Suspect]
     Route: 055
     Dates: start: 20110317, end: 20110321

REACTIONS (1)
  - DRUG EXPOSURE VIA BREAST MILK [None]
